FAERS Safety Report 7595693-4 (Version None)
Quarter: 2011Q3

REPORT INFORMATION
  Report Type: 
  Country: None (occurrence: None)
  Receive Date: 20110707
  Receipt Date: 20110705
  Transmission Date: 20111222
  Serious: Yes (Death, Other)
  Sender: FDA-Public Use
  Company Number: PHHY2011US59534

PATIENT
  Age: 54 Year
  Sex: Female
  Weight: 76 kg

DRUGS (8)
  1. LEVOFLOXACIN [Concomitant]
     Dosage: 750 MG, (ON HOSPITAL DAY 19)
     Route: 042
  2. LEVETIRACETAM [Concomitant]
     Dosage: 1500 MG, BID (ON HOSPITAL DAY 15)
  3. DORIPENEM MONOHYDRATE [Interacting]
     Dosage: 500 MG, Q8H (ON HOSPITAL DAY 22)
     Route: 042
  4. LEVETIRACETAM [Concomitant]
     Indication: PROPHYLAXIS
     Dosage: 500 MG, BID
  5. CEFTRIAXONE [Concomitant]
     Indication: PNEUMONIA KLEBSIELLA
     Dosage: 2 G, UNK
     Route: 042
  6. VALPROATE SODIUM [Suspect]
     Indication: CONVULSION
     Route: 042
  7. PIPERACILLIN AND TAZOBACTAM [Concomitant]
     Indication: PNEUMONIA ASPIRATION
     Dosage: 3.375 G, Q8H
  8. VALPROATE SODIUM [Interacting]
     Dosage: 1250 MG, Q8H
     Route: 042

REACTIONS (3)
  - DRUG LEVEL DECREASED [None]
  - DRUG INTERACTION [None]
  - MULTIPLE INJURIES [None]
